FAERS Safety Report 18586700 (Version 1)
Quarter: 2020Q4

REPORT INFORMATION
  Report Type: Spontaneous
  Country: US (occurrence: US)
  Receive Date: 20201204
  Receipt Date: 20201204
  Transmission Date: 20210114
  Serious: Yes (Hospitalization)
  Sender: FDA-Public Use
  Company Number: None

PATIENT
  Age: 66 Year
  Sex: Female

DRUGS (25)
  1. SILDENAFIL. [Concomitant]
     Active Substance: SILDENAFIL
  2. FERROUS SULFATE. [Concomitant]
     Active Substance: FERROUS SULFATE
  3. NORTRIPTYLINE [Concomitant]
     Active Substance: NORTRIPTYLINE
  4. CLEARLAX [Concomitant]
     Active Substance: POLYETHYLENE GLYCOL 3350
  5. MORPHINE [Concomitant]
     Active Substance: MORPHINE
  6. ASPIRIN. [Concomitant]
     Active Substance: ASPIRIN
  7. AMBRISENTAN 10MG TABLETS 30/BO: 10MG [Suspect]
     Active Substance: AMBRISENTAN
     Indication: PULMONARY HYPERTENSION
     Route: 048
     Dates: start: 201703
  8. FAMOTIDINE. [Concomitant]
     Active Substance: FAMOTIDINE
  9. MIRTAZAPINE. [Concomitant]
     Active Substance: MIRTAZAPINE
  10. NARCAN [Concomitant]
     Active Substance: NALOXONE HYDROCHLORIDE
  11. MECLIZINE [Concomitant]
     Active Substance: MECLIZINE HYDROCHLORIDE
  12. KLORCON [Concomitant]
  13. ALVESCO HFA [Concomitant]
  14. UPTRAVI [Concomitant]
     Active Substance: SELEXIPAG
  15. METOLAZONE. [Concomitant]
     Active Substance: METOLAZONE
  16. COLOCHICINE [Concomitant]
  17. ATORVASTATIHN [Concomitant]
  18. BUMETANIDE. [Concomitant]
     Active Substance: BUMETANIDE
  19. SENNA  LEXATIVE [Concomitant]
  20. NORCO [Concomitant]
     Active Substance: ACETAMINOPHEN\HYDROCODONE BITARTRATE
  21. OLANZAPINE. [Concomitant]
     Active Substance: OLANZAPINE
  22. DOK [Concomitant]
     Active Substance: DOCUSATE SODIUM
  23. ALLOPURINOL. [Concomitant]
     Active Substance: ALLOPURINOL
  24. ALBUTEROL HFA [Concomitant]
     Active Substance: ALBUTEROL SULFATE
  25. CALCIUM 500+D [Concomitant]
     Active Substance: CALCIUM\VITAMIN D

REACTIONS (5)
  - Acute kidney injury [None]
  - Pulmonary hypertension [None]
  - Acute respiratory failure [None]
  - Mental status changes [None]
  - Hypoxia [None]

NARRATIVE: CASE EVENT DATE: 20201105
